FAERS Safety Report 6017738-5 (Version None)
Quarter: 2008Q4

REPORT INFORMATION
  Report Type: 
  Country: None (occurrence: None)
  Receive Date: 20081217
  Receipt Date: 20081106
  Transmission Date: 20090506
  Serious: No
  Sender: FDA-Public Use
  Company Number: US-WYE-H06767208

PATIENT
  Age: 44 Year
  Sex: Female
  Weight: 56.3 kg

DRUGS (5)
  1. TORISEL [Suspect]
     Indication: RENAL CELL CARCINOMA STAGE IV
     Dosage: 25 MG 1X PER 1 WK,  INTRAVENOUS
     Route: 042
     Dates: start: 20080909
  2. ZOMETA [Concomitant]
  3. NEURONTIN [Concomitant]
  4. XANAX [Concomitant]
  5. SYNTHROID [Concomitant]

REACTIONS (7)
  - ABDOMINAL PAIN [None]
  - ERYTHEMA [None]
  - LOCALISED INFECTION [None]
  - PAIN IN EXTREMITY [None]
  - PAINFUL RESPIRATION [None]
  - RASH [None]
  - SWELLING [None]
